FAERS Safety Report 15815300 (Version 2)
Quarter: 2019Q1

REPORT INFORMATION
  Report Type: Spontaneous
  Country: IT (occurrence: IT)
  Receive Date: 20190112
  Receipt Date: 20190121
  Transmission Date: 20190417
  Serious: Yes (Death)
  Sender: FDA-Public Use
  Company Number: IT-TEVA-2019-IT-997574

PATIENT
  Age: 79 Year
  Sex: Female
  Weight: 51 kg

DRUGS (1)
  1. FLUOROURACILE AHCL 50 MG/ML, SOLUZIONE PER INIEZIONE O INFUSIONE [Suspect]
     Active Substance: FLUOROURACIL SODIUM
     Indication: COLON NEOPLASM
     Route: 041
     Dates: start: 20181217, end: 20181221

REACTIONS (5)
  - Pancytopenia [Fatal]
  - Bone marrow toxicity [Fatal]
  - Diarrhoea [Fatal]
  - Vulvovaginitis [Fatal]
  - Mucosal inflammation [Fatal]

NARRATIVE: CASE EVENT DATE: 20181222
